FAERS Safety Report 4534495-X (Version None)
Quarter: 2004Q4

REPORT INFORMATION
  Report Type: 
  Country: None (occurrence: None)
  Receive Date: 20041222
  Receipt Date: 20041118
  Transmission Date: 20050328
  Serious: Yes (Hospitalization, Disabling, Other)
  Sender: FDA-Public Use
  Company Number: DEWYE215419NOV04

PATIENT
  Sex: Female

DRUGS (4)
  1. ENBREL [Suspect]
     Indication: DRUG USE FOR UNKNOWN INDICATION
     Dosage: UNKNOWN
     Route: 058
     Dates: start: 20020101, end: 20040101
  2. METHOTREXATE [Concomitant]
     Dates: start: 19940101
  3. FOSAMAX [Concomitant]
  4. PREDNISOLONE [Concomitant]

REACTIONS (4)
  - CEREBELLAR INFARCTION [None]
  - CONDITION AGGRAVATED [None]
  - RHEUMATOID ARTHRITIS [None]
  - VASCULITIS [None]
